FAERS Safety Report 9193897 (Version 1)
Quarter: 2013Q1

REPORT INFORMATION
  Report Type: Report from Study
  Country: GB (occurrence: GB)
  Receive Date: 20130327
  Receipt Date: 20130327
  Transmission Date: 20140127
  Serious: Yes (Other)
  Sender: FDA-Public Use
  Company Number: GB-UCBSA-081288

PATIENT
  Sex: Female

DRUGS (4)
  1. LEVETIRACETAM [Suspect]
     Indication: EPILEPSY
     Dosage: DAILY DOSE : 4000 MG
  2. LAMOTRIGINE [Concomitant]
     Indication: EPILEPSY
  3. TOPIRAMATE [Concomitant]
     Indication: EPILEPSY
  4. ZONISAMIDE [Concomitant]
     Indication: EPILEPSY

REACTIONS (3)
  - Abortion spontaneous [Unknown]
  - Overdose [Unknown]
  - Pregnancy [Recovered/Resolved]
